FAERS Safety Report 25525363 (Version 1)
Quarter: 2025Q3

REPORT INFORMATION
  Report Type: Spontaneous
  Country: MY (occurrence: MY)
  Receive Date: 20250707
  Receipt Date: 20250707
  Transmission Date: 20251020
  Serious: Yes (Other)
  Sender: MYLAN
  Company Number: MY-MYLANLABS-2025M1055728

PATIENT
  Age: 9 Decade
  Sex: Male

DRUGS (2)
  1. VANCOMYCIN [Suspect]
     Active Substance: VANCOMYCIN
     Indication: Peritonitis
  2. MEROPENEM [Suspect]
     Active Substance: MEROPENEM
     Indication: Peritonitis

REACTIONS (1)
  - Drug ineffective [Unknown]
